FAERS Safety Report 9901092 (Version 2)
Quarter: 2014Q1

REPORT INFORMATION
  Report Type: Spontaneous
  Country: US (occurrence: US)
  Receive Date: 20140217
  Receipt Date: 20140218
  Transmission Date: 20141002
  Serious: No
  Sender: FDA-Public Use
  Company Number: US-PFIZER INC-2014041178

PATIENT
  Sex: Female

DRUGS (2)
  1. LYRICA [Suspect]
     Indication: TREMOR
     Dosage: 2 DF, UNK
  2. LYRICA [Suspect]
     Indication: NEURALGIA

REACTIONS (1)
  - Off label use [Unknown]
